FAERS Safety Report 8208342-9 (Version None)
Quarter: 2012Q1

REPORT INFORMATION
  Report Type: 
  Country: None (occurrence: None)
  Receive Date: 20120314
  Receipt Date: 20120312
  Transmission Date: 20120608
  Serious: Yes (Death)
  Sender: FDA-Public Use
  Company Number: PHEH2011US012496

PATIENT
  Sex: Male
  Weight: 87 kg

DRUGS (1)
  1. ZOMETA [Suspect]
     Dosage: 4 MG/ 5 ML
     Dates: start: 20111011

REACTIONS (1)
  - DEATH [None]
